FAERS Safety Report 25263070 (Version 1)
Quarter: 2025Q2

REPORT INFORMATION
  Report Type: Spontaneous
  Country: US (occurrence: None)
  Receive Date: 20250501
  Receipt Date: 20250501
  Transmission Date: 20250716
  Serious: Yes (Hospitalization)
  Sender: FDA-CTU
  Company Number: None

PATIENT
  Sex: Female

DRUGS (2)
  1. NIVESTYM [Suspect]
     Active Substance: FILGRASTIM-AAFI
     Indication: Malignant connective tissue neoplasm
     Route: 058
     Dates: start: 20250312
  2. NIVESTYM [Suspect]
     Active Substance: FILGRASTIM-AAFI
     Indication: Soft tissue sarcoma

REACTIONS (4)
  - Emergency care [None]
  - White blood cell count decreased [None]
  - Post procedural complication [None]
  - Chemotherapy [None]
